FAERS Safety Report 23334065 (Version 1)
Quarter: 2023Q4

REPORT INFORMATION
  Report Type: Spontaneous
  Country: US (occurrence: US)
  Receive Date: 20231223
  Receipt Date: 20231223
  Transmission Date: 20240110
  Serious: Yes (Hospitalization, Other)
  Sender: FDA-Public Use
  Company Number: US-APOTEX-2023AP018270

PATIENT
  Age: 10 Month
  Sex: Male

DRUGS (2)
  1. POTASSIUM CHLORIDE [Suspect]
     Active Substance: POTASSIUM CHLORIDE
     Indication: Chronic respiratory disease
     Dosage: UNK
     Route: 065
  2. FUROSEMIDE [Concomitant]
     Active Substance: FUROSEMIDE
     Indication: Chronic respiratory disease
     Dosage: UNK
     Route: 065

REACTIONS (8)
  - Overdose [Recovering/Resolving]
  - Respiratory failure [Recovering/Resolving]
  - Hypovolaemic shock [Recovering/Resolving]
  - Acute kidney injury [Recovered/Resolved]
  - Diabetic ketoacidosis [Recovering/Resolving]
  - Lethargy [Recovering/Resolving]
  - Hyperglycaemia [Recovered/Resolved]
  - Hypernatraemia [Recovered/Resolved]
